FAERS Safety Report 18182445 (Version 1)
Quarter: 2020Q3

REPORT INFORMATION
  Report Type: Spontaneous
  Country: US (occurrence: US)
  Receive Date: 20200821
  Receipt Date: 20200821
  Transmission Date: 20201103
  Serious: Yes (Hospitalization)
  Sender: FDA-Public Use
  Company Number: US-MYLANLABS-2020M1072850

PATIENT
  Age: 29 Year
  Sex: Female

DRUGS (7)
  1. PREGABALIN. [Suspect]
     Active Substance: PREGABALIN
     Indication: PAIN MANAGEMENT
     Dosage: 50 MILLIGRAM, Q8H
     Route: 065
  2. TRAMADOL. [Concomitant]
     Active Substance: TRAMADOL
     Indication: PAIN MANAGEMENT
     Dosage: 100 MILLIGRAM, Q6H
     Route: 065
  3. OXYCODONE [Suspect]
     Active Substance: OXYCODONE
     Indication: PAIN MANAGEMENT
     Dosage: 5 MILLIGRAM, Q4H
     Route: 048
  4. ACETAMINOPHEN AND CODEINE [Concomitant]
     Active Substance: ACETAMINOPHEN\CODEINE PHOSPHATE
     Indication: PAIN MANAGEMENT
     Dosage: UNK, Q6H 600?60MG
     Route: 065
  5. MORPHINE [Suspect]
     Active Substance: MORPHINE
     Indication: PAIN MANAGEMENT
     Dosage: 15 MILLIGRAM, BID IMMEDIATE?RELEASE
     Route: 048
  6. CAFFEINE CITRATE W/PARACETAMOL [Suspect]
     Active Substance: ACETAMINOPHEN\CAFFEINE CITRATE
     Indication: PAIN MANAGEMENT
     Dosage: UNK, Q6H 200?650 MG
     Route: 065
  7. NAPROXEN. [Concomitant]
     Active Substance: NAPROXEN
     Indication: PAIN MANAGEMENT
     Dosage: 500 MILLIGRAM, .5 DAY
     Route: 065

REACTIONS (1)
  - Drug ineffective [Unknown]
